FAERS Safety Report 19112918 (Version 2)
Quarter: 2021Q3

REPORT INFORMATION
  Report Type: Spontaneous
  Country: US (occurrence: US)
  Receive Date: 20210408
  Receipt Date: 20210709
  Transmission Date: 20211014
  Serious: Yes (Other)
  Sender: FDA-Public Use
  Company Number: US-GILEAD-2021-0524261

PATIENT
  Sex: Male

DRUGS (2)
  1. ATRIPLA [Suspect]
     Active Substance: EFAVIRENZ\EMTRICITABINE\TENOFOVIR DISOPROXIL FUMARATE
     Indication: HIV INFECTION
     Dosage: UNK
     Route: 048
     Dates: start: 200607, end: 201801
  2. ATRIPLA [Suspect]
     Active Substance: EFAVIRENZ\EMTRICITABINE\TENOFOVIR DISOPROXIL FUMARATE
     Dosage: UNK
     Route: 048
     Dates: start: 2006, end: 2018

REACTIONS (11)
  - Bone density abnormal [Unknown]
  - Anxiety [Unknown]
  - Anhedonia [Unknown]
  - Multiple fractures [Unknown]
  - Osteopenia [Unknown]
  - Tooth loss [Unknown]
  - Bone density decreased [Unknown]
  - Osteonecrosis [Unknown]
  - Pain [Unknown]
  - Emotional distress [Unknown]
  - Bone loss [Unknown]
